FAERS Safety Report 8859873 (Version 1)
Quarter: 2012Q4

REPORT INFORMATION
  Report Type: Report from Study
  Country: US (occurrence: US)
  Receive Date: 20121025
  Receipt Date: 20121025
  Transmission Date: 20130627
  Serious: No
  Sender: FDA-Public Use
  Company Number: US-ABBOTT-11P-163-0876208-00

PATIENT
  Sex: Female
  Weight: 59.02 kg

DRUGS (6)
  1. LUPRON DEPOT 3.75 MG [Suspect]
     Indication: ENDOMETRIOSIS
     Dates: start: 20110805
  2. VENTOLIN [Concomitant]
     Indication: ASTHMA EXERCISE INDUCED
     Route: 055
  3. FLUTICASONE [Concomitant]
     Indication: HYPERSENSITIVITY
  4. TERBUTALINE SULFATE [Concomitant]
     Indication: UTERINE SPASM
  5. MAGNESIUM OXIDE [Concomitant]
     Indication: UTERINE SPASM
  6. PROGESTERONE [Concomitant]
     Indication: HORMONE REPLACEMENT THERAPY
     Dates: start: 201108

REACTIONS (3)
  - Hot flush [Not Recovered/Not Resolved]
  - Abdominal pain [Unknown]
  - Adnexa uteri pain [Unknown]
